FAERS Safety Report 18239208 (Version 2)
Quarter: 2020Q3

REPORT INFORMATION
  Report Type: Spontaneous
  Country: CH (occurrence: CH)
  Receive Date: 20200907
  Receipt Date: 20200918
  Transmission Date: 20201103
  Serious: Yes (Life-Threatening, Other)
  Sender: FDA-Public Use
  Company Number: CH-BRISTOL-MYERS SQUIBB COMPANY-BMS-2020-071021

PATIENT
  Age: 48 Year
  Sex: Male
  Weight: 72 kg

DRUGS (15)
  1. CEFTRIAXONE. [Suspect]
     Active Substance: CEFTRIAXONE
     Indication: PNEUMONIA
     Dosage: 2 GRAM, QD
     Route: 042
     Dates: start: 20200323, end: 20200326
  2. ROCURONIUM [Concomitant]
     Active Substance: ROCURONIUM BROMIDE
     Indication: PRODUCT USED FOR UNKNOWN INDICATION
     Dosage: VARIABLE DOSES AS OF 24?MAR?2020 AND PRESUMABLY UP TO 06?APR?2020
     Route: 065
  3. TARIVID [OFLOXACIN] [Suspect]
     Active Substance: OFLOXACIN
     Indication: PYREXIA
     Dosage: UNK
     Route: 048
     Dates: start: 20200318, end: 20200321
  4. AUGMENTIN [Suspect]
     Active Substance: AMOXICILLIN\CLAVULANATE POTASSIUM
     Indication: PYREXIA
     Dosage: UNK
     Route: 048
     Dates: start: 20200318, end: 20200321
  5. PROPOFOL. [Concomitant]
     Active Substance: PROPOFOL
     Indication: PRODUCT USED FOR UNKNOWN INDICATION
     Dosage: VARIABLE DOSES AS OF 24?MAR?2020 AND PRESUMABLY UP TO 06?APR?2020
     Route: 065
  6. CEFEPIME DIHYDROCHLORIDE MONOHYDRATE [Suspect]
     Active Substance: CEFEPIME HYDROCHLORIDE
     Indication: PNEUMONIA
     Dosage: 2 GRAM AT DRUG DOSE INTERVAL OF 3UNITS IN DAY
     Route: 042
     Dates: start: 20200327, end: 20200402
  7. FENTANYL. [Concomitant]
     Active Substance: FENTANYL
     Indication: PRODUCT USED FOR UNKNOWN INDICATION
     Dosage: VARIABLE DOSES AS OF 24?MAR?2020 AND PRESUMABLY UP TO 06?APR?2020
     Route: 065
  8. DAFALGAN [Suspect]
     Active Substance: ACETAMINOPHEN
     Dosage: 1000 MILLIGRAM, QD
     Route: 048
     Dates: start: 20200328, end: 20200402
  9. TAZOBAC [PIPERACILLIN SODIUM;TAZOBACTAM SODIUM] [Suspect]
     Active Substance: PIPERACILLIN SODIUM\TAZOBACTAM SODIUM
     Indication: PNEUMONIA
     Dosage: 4500MG AT DRUG DOSE INTERVAL OF 2 DAY
     Route: 042
     Dates: start: 20200321, end: 20200323
  10. CLEXANE [Concomitant]
     Active Substance: ENOXAPARIN SODIUM
     Indication: PRODUCT USED FOR UNKNOWN INDICATION
     Dosage: 40 MILLIGRAM, QD
     Route: 058
     Dates: start: 20200323, end: 20200402
  11. SUPRACYCLIN [DOXYCYCLINE MONOHYDRATE] [Suspect]
     Active Substance: DOXYCYCLINE
     Indication: PNEUMONIA
     Dosage: 200 MILLIGRAM, QD
     Route: 048
     Dates: start: 20200330, end: 20200402
  12. MIDAZOLAM. [Concomitant]
     Active Substance: MIDAZOLAM
     Indication: PRODUCT USED FOR UNKNOWN INDICATION
     Dosage: VARIABLE DOSES AS OF 24?MAR?2020 AND PRESUMABLY UP TO 06?APR?2020
     Route: 065
  13. PLAQUENIL [Suspect]
     Active Substance: HYDROXYCHLOROQUINE SULFATE
     Indication: COVID-19
     Dosage: 400 MG BID FOR TWO DAYS ON 23 AND 24?MAR?2020, THEN 200 MG BID
     Route: 048
     Dates: start: 20200323, end: 20200327
  14. REYATAZ [Suspect]
     Active Substance: ATAZANAVIR SULFATE
     Indication: COVID-19
     Dosage: 400 MILLIGRAM, QD
     Route: 048
     Dates: start: 20200322, end: 20200329
  15. DAFALGAN [Suspect]
     Active Substance: ACETAMINOPHEN
     Indication: PYREXIA
     Dosage: 1,500?2,000 MG DAILY  (500 MG 1 TO 4 DAILY IF NECESSARY)
     Route: 048
     Dates: start: 20200322, end: 20200325

REACTIONS (8)
  - Cough [Unknown]
  - Pyrexia [Unknown]
  - Electrocardiogram T wave inversion [Unknown]
  - Hyperbilirubinaemia [Recovering/Resolving]
  - Jaundice [Unknown]
  - Lower respiratory tract infection bacterial [Unknown]
  - Hepatic enzyme increased [Recovering/Resolving]
  - Intentional product use issue [Unknown]

NARRATIVE: CASE EVENT DATE: 20200321
